FAERS Safety Report 7484966-1 (Version None)
Quarter: 2011Q2

REPORT INFORMATION
  Report Type: 
  Country: None (occurrence: None)
  Receive Date: 20110517
  Receipt Date: 20101004
  Transmission Date: 20111010
  Serious: No
  Sender: FDA-Public Use
  Company Number: US-BAYER-201022145BCC

PATIENT
  Sex: Female
  Weight: 72.727 kg

DRUGS (2)
  1. FISH OIL, HYDROGENATED [Concomitant]
  2. NAPROXEN (ALEVE) [Suspect]
     Dosage: UNK
     Dates: start: 20101002, end: 20101002

REACTIONS (1)
  - MEDICATION RESIDUE [None]
